FAERS Safety Report 8022677-4 (Version None)
Quarter: 2012Q1

REPORT INFORMATION
  Report Type: 
  Country: None (occurrence: None)
  Receive Date: 20120104
  Receipt Date: 20111229
  Transmission Date: 20120608
  Serious: Yes (Hospitalization)
  Sender: FDA-Public Use
  Company Number: DE-ABBOTT-11P-062-0733070-00

PATIENT
  Sex: Female
  Weight: 82 kg

DRUGS (1)
  1. HUMIRA [Suspect]
     Indication: CROHN'S DISEASE
     Dosage: 160MG IN WK 0; 80MG IN WK 2; 40MG EOW
     Route: 058
     Dates: start: 20090706, end: 20110404

REACTIONS (3)
  - ILEITIS [None]
  - ILEUS [None]
  - ILEAL STENOSIS [None]
